FAERS Safety Report 18361851 (Version 1)
Quarter: 2020Q4

REPORT INFORMATION
  Report Type: Spontaneous
  Country: US (occurrence: US)
  Receive Date: 20201008
  Receipt Date: 20201008
  Transmission Date: 20210114
  Serious: Yes (Other)
  Sender: FDA-Public Use
  Company Number: US-FRESENIUS KABI-FK202010409

PATIENT
  Age: 56 Year
  Sex: Male

DRUGS (9)
  1. DEXAMETHASONE INJECTION (MANUFACTURER UNKNOWN) [Suspect]
     Active Substance: DEXAMETHASONE
     Indication: PREMEDICATION
     Dosage: UNKNOWN
     Route: 065
     Dates: start: 20200902, end: 20200902
  2. CALCIUM FOLINATE [Suspect]
     Active Substance: LEUCOVORIN CALCIUM
     Indication: ADENOCARCINOMA PANCREAS
     Dosage: CYCLE 1
     Route: 065
     Dates: start: 20200805, end: 20200805
  3. FLUOROURACIL (MANUFACTURER UNKNOWN) [Suspect]
     Active Substance: FLUOROURACIL
     Indication: ADENOCARCINOMA PANCREAS
     Dosage: CYCLE 1
     Route: 065
     Dates: start: 20200805, end: 20200805
  4. IRINOTECAN MONOHYDROCHLORIDE TRIHYDRATE [Suspect]
     Active Substance: IRINOTECAN HYDROCHLORIDE
     Indication: ADENOCARCINOMA PANCREAS
     Dosage: CYCLE 1
     Route: 065
     Dates: start: 20200805, end: 20200805
  5. FLUOROURACIL (MANUFACTURER UNKNOWN) [Suspect]
     Active Substance: FLUOROURACIL
     Indication: METASTASES TO BONE
  6. APREPITANT. [Suspect]
     Active Substance: APREPITANT
     Indication: PREMEDICATION
     Route: 065
     Dates: start: 20200902, end: 20200902
  7. IRINOTECAN MONOHYDROCHLORIDE TRIHYDRATE [Suspect]
     Active Substance: IRINOTECAN HYDROCHLORIDE
     Indication: METASTASES TO BONE
     Dosage: CYCLE 2
     Route: 065
     Dates: start: 20200819, end: 20200819
  8. ATROPINE. [Suspect]
     Active Substance: ATROPINE
     Indication: PREMEDICATION
     Route: 065
     Dates: start: 20200902, end: 20200902
  9. CALCIUM FOLINATE [Suspect]
     Active Substance: LEUCOVORIN CALCIUM
     Indication: METASTASES TO BONE

REACTIONS (3)
  - Dizziness [Unknown]
  - Nausea [Unknown]
  - Headache [Unknown]

NARRATIVE: CASE EVENT DATE: 20200902
